FAERS Safety Report 17160162 (Version 2)
Quarter: 2021Q1

REPORT INFORMATION
  Report Type: Spontaneous
  Country: US (occurrence: US)
  Receive Date: 20191216
  Receipt Date: 20210107
  Transmission Date: 20210419
  Serious: No
  Sender: FDA-Public Use
  Company Number: US-SA-2019SA343389

PATIENT

DRUGS (1)
  1. DUPIXENT [Suspect]
     Active Substance: DUPILUMAB
     Indication: DERMATITIS ATOPIC
     Dosage: 300 MG, Q3W
     Route: 058
     Dates: start: 201910

REACTIONS (4)
  - Agitation [Unknown]
  - Injection site pain [Unknown]
  - Off label use [Unknown]
  - Injection site swelling [Recovered/Resolved]

NARRATIVE: CASE EVENT DATE: 201910
